FAERS Safety Report 5593239-3 (Version None)
Quarter: 2008Q1

REPORT INFORMATION
  Report Type: 
  Country: None (occurrence: None)
  Receive Date: 20080115
  Receipt Date: 20080115
  Transmission Date: 20080703
  Serious: Yes (Other)
  Sender: FDA-Public Use
  Company Number: None

PATIENT
  Age: 38 Year
  Sex: Male
  Weight: 68.0396 kg

DRUGS (1)
  1. LARIAM [Suspect]
     Indication: MALARIA PROPHYLAXIS
     Dosage: 1/WEEK  PO
     Route: 048
     Dates: start: 20040416, end: 20050101

REACTIONS (5)
  - ANXIETY [None]
  - DRUG TOXICITY [None]
  - FEAR [None]
  - MOOD SWINGS [None]
  - PANIC DISORDER [None]
